FAERS Safety Report 21525111 (Version 3)
Quarter: 2023Q1

REPORT INFORMATION
  Report Type: Report from Study
  Country: CN (occurrence: CN)
  Receive Date: 20221030
  Receipt Date: 20230308
  Transmission Date: 20230417
  Serious: Yes (Hospitalization)
  Sender: FDA-Public Use
  Company Number: CN-BAYER-2022A139238

PATIENT
  Age: 68 Year
  Sex: Male
  Weight: 50 kg

DRUGS (10)
  1. RIVAROXABAN [Suspect]
     Active Substance: RIVAROXABAN
     Indication: Peripheral arterial occlusive disease
     Dosage: 2.5 MG, BID
     Route: 048
     Dates: start: 20220305, end: 20220605
  2. RIVAROXABAN [Suspect]
     Active Substance: RIVAROXABAN
     Indication: Coronary artery disease
     Dosage: 2.5 MG, BID
     Route: 048
     Dates: start: 20220607, end: 20221001
  3. RIVAROXABAN [Suspect]
     Active Substance: RIVAROXABAN
     Indication: Cardiovascular event prophylaxis
     Route: 048
  4. ASPIRIN [Suspect]
     Active Substance: ASPIRIN
     Indication: Peripheral arterial occlusive disease
     Dosage: 100 MG, QD
     Route: 048
     Dates: start: 20220304, end: 20221001
  5. ASPIRIN [Suspect]
     Active Substance: ASPIRIN
     Indication: Coronary artery disease
  6. ASPIRIN [Suspect]
     Active Substance: ASPIRIN
     Indication: Cardiovascular event prophylaxis
  7. SARPOGRELATE [Concomitant]
     Active Substance: SARPOGRELATE
     Indication: Antiplatelet therapy
     Dosage: 100 MG, TID
     Dates: start: 20220304, end: 20221006
  8. COVID-19 VACCINE [Concomitant]
     Dosage: 0.5 ML, PRN
     Dates: start: 20210425, end: 20210425
  9. COVID-19 VACCINE [Concomitant]
     Dosage: 0.5 ML, PRN
     Dates: start: 20210710, end: 20210710
  10. ACETAMINOPHEN [Concomitant]
     Active Substance: ACETAMINOPHEN
     Dosage: 1 DF, PRN
     Dates: start: 20220301, end: 20221001

REACTIONS (2)
  - Upper gastrointestinal haemorrhage [Recovered/Resolved]
  - Gastric haemorrhage [Recovered/Resolved]

NARRATIVE: CASE EVENT DATE: 20221001
